FAERS Safety Report 25765161 (Version 2)
Quarter: 2025Q3

REPORT INFORMATION
  Report Type: Spontaneous
  Country: EU (occurrence: EU)
  Receive Date: 20250905
  Receipt Date: 20250930
  Transmission Date: 20251021
  Serious: Yes (Hospitalization, Other)
  Sender: UCB
  Company Number: EU-UCBSA-2025053884

PATIENT
  Age: 5 Year
  Sex: Male
  Weight: 15.5 kg

DRUGS (6)
  1. FINTEPLA [Suspect]
     Active Substance: FENFLURAMINE
     Indication: Epileptic encephalopathy
     Dosage: 0.20 MILLIGRAM/KILOGRAM, ONCE DAILY (QD)
     Route: 048
     Dates: start: 20250821, end: 20250825
  2. FINTEPLA [Suspect]
     Active Substance: FENFLURAMINE
     Indication: CDKL5 deficiency disorder
  3. FINTEPLA [Suspect]
     Active Substance: FENFLURAMINE
     Indication: Off label use
  4. VALPROIC ACID [Concomitant]
     Active Substance: VALPROIC ACID
     Indication: Epilepsy
     Dosage: 2.5 MILLILITER, 3X/DAY (TID)
     Route: 048
  5. SULTHIAME [Concomitant]
     Active Substance: SULTHIAME
     Indication: Product used for unknown indication
  6. SULPRIM [Concomitant]
     Indication: Epilepsy
     Route: 048
     Dates: start: 202504

REACTIONS (7)
  - Seizure cluster [Unknown]
  - Condition aggravated [Unknown]
  - Seizure [Recovered/Resolved with Sequelae]
  - Epileptic encephalopathy [Unknown]
  - Therapeutic response unexpected [Unknown]
  - Off label use [Unknown]
  - Drug ineffective [Unknown]

NARRATIVE: CASE EVENT DATE: 20250801
